FAERS Safety Report 14619306 (Version 1)
Quarter: 2018Q1

REPORT INFORMATION
  Report Type: Spontaneous
  Country: US (occurrence: US)
  Receive Date: 20180309
  Receipt Date: 20180309
  Transmission Date: 20180509
  Serious: Yes (Hospitalization)
  Sender: FDA-Public Use
  Company Number: None

PATIENT
  Age: 68 Year
  Sex: Female

DRUGS (1)
  1. IBRANCE [Suspect]
     Active Substance: PALBOCICLIB
     Indication: BREAST CANCER FEMALE
     Dosage: ONE CAPSULE DAILY FOR FIRST 21 DAYS THEN 7 DAYS OFF ORAL
     Route: 048
     Dates: start: 20180112

REACTIONS (1)
  - Hospitalisation [None]
